FAERS Safety Report 9027940 (Version 1)
Quarter: 2013Q1

REPORT INFORMATION
  Report Type: Spontaneous
  Country: US (occurrence: None)
  Receive Date: 20130114
  Receipt Date: 20130114
  Transmission Date: 20140127
  Serious: Yes (Other)
  Sender: FDA-Public Use
  Company Number: None

PATIENT
  Age: 56 Year
  Sex: Female
  Weight: 88.4 kg

DRUGS (3)
  1. BORTEZOMIB [Suspect]
     Indication: PLASMA CELL MYELOMA
     Dosage: 2.6 MG Q7 DAYS X 1 MONTH SUBCUTANEOUS
     Route: 058
     Dates: start: 20120213, end: 20121130
  2. DEXAMETHASONE [Concomitant]
  3. ZOFRAN [Concomitant]

REACTIONS (1)
  - Injection site discolouration [None]
